FAERS Safety Report 18009998 (Version 1)
Quarter: 2020Q3

REPORT INFORMATION
  Report Type: Spontaneous
  Country: DE (occurrence: DE)
  Receive Date: 20200710
  Receipt Date: 20200710
  Transmission Date: 20201103
  Serious: Yes (Death, Hospitalization)
  Sender: FDA-Public Use
  Company Number: DE-EISAI MEDICAL RESEARCH-EC-2020-077215

PATIENT
  Age: 71 Year
  Sex: Female

DRUGS (1)
  1. LENVIMA [Suspect]
     Active Substance: LENVATINIB
     Indication: THYROID CANCER
     Route: 048

REACTIONS (14)
  - Urinary tract infection [Unknown]
  - Hand-foot-and-mouth disease [Unknown]
  - Dehydration [Unknown]
  - Mucosal inflammation [Unknown]
  - Dysgeusia [Unknown]
  - Polyneuropathy [Unknown]
  - General physical health deterioration [Unknown]
  - Fatigue [Unknown]
  - Decreased appetite [Unknown]
  - Acute kidney injury [Fatal]
  - Blood thyroid stimulating hormone increased [Unknown]
  - Nausea [Unknown]
  - Malignant neoplasm progression [Unknown]
  - Hypertension [Unknown]
